FAERS Safety Report 9953494 (Version 1)
Quarter: 2014Q1

REPORT INFORMATION
  Report Type: Report from Study
  Country: US (occurrence: US)
  Receive Date: 20140304
  Receipt Date: 20140304
  Transmission Date: 20141002
  Serious: No
  Sender: FDA-Public Use
  Company Number: US-ABBVIE-13P-163-1073946-00

PATIENT
  Age: 69 Year
  Sex: Female
  Weight: 77.18 kg

DRUGS (7)
  1. HUMIRA [Suspect]
     Indication: PSORIASIS
     Dates: start: 201210, end: 201210
  2. LANTUS [Concomitant]
     Indication: DIABETES MELLITUS
  3. METFORMIN [Concomitant]
     Indication: DIABETES MELLITUS
  4. COREG [Concomitant]
     Indication: CARDIAC DISORDER
  5. SIMVASTATIN [Concomitant]
     Indication: CARDIAC DISORDER
  6. LEVOTHYROXINE [Concomitant]
     Indication: HYPOTHYROIDISM
  7. ONE A DAY [Concomitant]
     Indication: VITAMIN SUPPLEMENTATION

REACTIONS (4)
  - Sinus disorder [Not Recovered/Not Resolved]
  - Influenza [Recovered/Resolved]
  - Fall [Recovered/Resolved]
  - Upper limb fracture [Recovering/Resolving]
